FAERS Safety Report 21469629 (Version 1)
Quarter: 2022Q4

REPORT INFORMATION
  Report Type: Spontaneous
  Country: US (occurrence: US)
  Receive Date: 20221018
  Receipt Date: 20221018
  Transmission Date: 20230113
  Serious: No
  Sender: FDA-Public Use
  Company Number: US-ADAMAS PHARMA, LLC-2022ADA00581

PATIENT
  Age: 69 Year
  Sex: Male
  Weight: 70.295 kg

DRUGS (16)
  1. GOCOVRI [Suspect]
     Active Substance: AMANTADINE
     Indication: Dyskinesia
     Dosage: 137 MG, 1X/DAY AT BEDTIME
     Route: 048
     Dates: start: 20220301, end: 20220303
  2. GOCOVRI [Suspect]
     Active Substance: AMANTADINE
     Dosage: 137 MG, 1X/DAY IN THE MORNING
     Route: 048
     Dates: start: 20220304, end: 20220308
  3. GOCOVRI [Suspect]
     Active Substance: AMANTADINE
     Dosage: 274 MG, 1X/DAY IN THE MORNING
     Route: 048
     Dates: start: 20220309, end: 20220311
  4. GOCOVRI [Suspect]
     Active Substance: AMANTADINE
     Dosage: 137 MG, 1X/DAY
     Route: 048
     Dates: start: 20220312, end: 20220314
  5. AMILORIDE/ HYDROCHLOROTHIAZIDE [Concomitant]
  6. ASPIRIN [Concomitant]
     Active Substance: ASPIRIN
  7. CARBIDOPA\LEVODOPA [Concomitant]
     Active Substance: CARBIDOPA\LEVODOPA
  8. CLONAZEPAM [Concomitant]
     Active Substance: CLONAZEPAM
  9. FENOFIBRATE [Concomitant]
     Active Substance: FENOFIBRATE
  10. MELATONIN [Concomitant]
     Active Substance: MELATONIN
  11. MULTIVITAMIN MEN 50+ [Concomitant]
  12. RASAGILINE [Concomitant]
     Active Substance: RASAGILINE
  13. ROPINIROLE [Concomitant]
     Active Substance: ROPINIROLE
  14. SILDENAFIL [Concomitant]
     Active Substance: SILDENAFIL
  15. VITAMIN B12 [Concomitant]
     Active Substance: CYANOCOBALAMIN
  16. COPPER [Concomitant]
     Active Substance: COPPER

REACTIONS (8)
  - Vitreous floaters [Recovering/Resolving]
  - Balance disorder [Recovered/Resolved]
  - Visual impairment [Unknown]
  - Insomnia [Recovered/Resolved]
  - Hallucinations, mixed [Recovered/Resolved]
  - Dry mouth [Unknown]
  - Constipation [Unknown]
  - Vision blurred [Recovered/Resolved]

NARRATIVE: CASE EVENT DATE: 20220301
